FAERS Safety Report 19256332 (Version 1)
Quarter: 2021Q2

REPORT INFORMATION
  Report Type: Report from Study
  Country: CN (occurrence: CN)
  Receive Date: 20210513
  Receipt Date: 20210513
  Transmission Date: 20210717
  Serious: Yes (Other)
  Sender: FDA-Public Use
  Company Number: CN-JNJFOC-20210513703

PATIENT

DRUGS (6)
  1. LOPINAVIR/RITONAVIR [Suspect]
     Active Substance: LOPINAVIR\RITONAVIR
     Indication: COVID-19
     Dosage: 400/100 MG
     Route: 048
  2. PREZCOBIX [Suspect]
     Active Substance: COBICISTAT\DARUNAVIR ETHANOLATE
     Indication: COVID-19
     Dosage: 800/150 MG
     Route: 048
  3. ARBIDOL [Suspect]
     Active Substance: UMIFENOVIR
     Indication: COVID-19
     Route: 048
  4. BALOXAVIR MARBOXIL. [Suspect]
     Active Substance: BALOXAVIR MARBOXIL
     Indication: COVID-19
     Route: 048
  5. FAVIPIRAVIR [Suspect]
     Active Substance: FAVIPIRAVIR
     Dosage: FOR NOT MORE THAN 14 DAYS.
     Route: 048
  6. FAVIPIRAVIR [Suspect]
     Active Substance: FAVIPIRAVIR
     Indication: COVID-19
     Dosage: 1600 MG OR 2200 MG
     Route: 048

REACTIONS (18)
  - Respiratory failure [Unknown]
  - Fibrin D dimer increased [Unknown]
  - Blood albumin decreased [Unknown]
  - Rash [Unknown]
  - Aspartate aminotransferase increased [Unknown]
  - Blood bilirubin increased [Unknown]
  - Blood creatine phosphokinase increased [Unknown]
  - Product use in unapproved indication [Unknown]
  - Anaemia [Unknown]
  - Blood triglycerides increased [Unknown]
  - Blood lactate dehydrogenase increased [Unknown]
  - Leukopenia [Unknown]
  - Diarrhoea [Unknown]
  - Nausea [Unknown]
  - Alanine aminotransferase increased [Unknown]
  - Off label use [Unknown]
  - Acute respiratory distress syndrome [Unknown]
  - Lymphopenia [Unknown]
